FAERS Safety Report 17781234 (Version 1)
Quarter: 2020Q2

REPORT INFORMATION
  Report Type: Spontaneous
  Country: BR (occurrence: BR)
  Receive Date: 20200514
  Receipt Date: 20200514
  Transmission Date: 20200714
  Serious: Yes (Other)
  Sender: FDA-Public Use
  Company Number: BR-TORRENT-00005336

PATIENT
  Age: 74 Year
  Sex: Female
  Weight: 72 kg

DRUGS (3)
  1. NEBLOCK [Suspect]
     Active Substance: NEBIVOLOL HYDROCHLORIDE
     Indication: CORONARY ARTERY DISEASE
     Dosage: ONE TABLET AFTER BREAKFAST
     Route: 048
  2. BENICAR [Concomitant]
     Active Substance: OLMESARTAN MEDOXOMIL
     Indication: HYPERTENSION
     Dosage: ONE TABLET AFTER BREAKFAST
     Route: 048
  3. DOSS [Concomitant]
     Active Substance: DOCUSATE SODIUM
     Indication: VITAMIN SUPPLEMENTATION
     Dosage: ONE 2000 UI CAPSULE AFTER BREAKFAST
     Route: 048
     Dates: start: 20191206

REACTIONS (2)
  - Thyroid operation [Unknown]
  - Product odour abnormal [Unknown]

NARRATIVE: CASE EVENT DATE: 20191206
